FAERS Safety Report 10010238 (Version 2)
Quarter: 2014Q1

REPORT INFORMATION
  Report Type: Spontaneous
  Country: IT (occurrence: IT)
  Receive Date: 20140313
  Receipt Date: 20140320
  Transmission Date: 20141002
  Serious: Yes (Life-Threatening, Hospitalization)
  Sender: FDA-Public Use
  Company Number: IT-TEVA-466780ISR

PATIENT
  Age: 63 Year
  Sex: Male

DRUGS (6)
  1. OXALIPLATINO TEVA [Suspect]
     Indication: COLON CANCER
     Dosage: 45 MILLIGRAM DAILY;
     Route: 041
     Dates: start: 20140108, end: 20140219
  2. OXALIPLATINO TEVA [Suspect]
     Dosage: 100 MILLIGRAM DAILY; CONCENTRATE FOR SOLUTION FOR INFUSION
     Route: 041
     Dates: start: 20140108, end: 20140219
  3. FLUOROURACILE TEVA [Concomitant]
     Dosage: 700 MILLIGRAM DAILY;
  4. SOLDESAM [Concomitant]
  5. ZOFRAN [Concomitant]
  6. LEVOFOLENE [Concomitant]

REACTIONS (2)
  - Acute myocardial infarction [Recovering/Resolving]
  - Hypotension [Recovering/Resolving]
